FAERS Safety Report 15372851 (Version 1)
Quarter: 2018Q3

REPORT INFORMATION
  Report Type: Spontaneous
  Country: IT (occurrence: IT)
  Receive Date: 20180912
  Receipt Date: 20180912
  Transmission Date: 20181010
  Serious: Yes (Hospitalization, Other)
  Sender: FDA-Public Use
  Company Number: IT-HETERO CORPORATE-HET2018IT00913

PATIENT
  Age: 5 Year
  Sex: Male

DRUGS (1)
  1. LINEZOLID. [Suspect]
     Active Substance: LINEZOLID
     Indication: DRUG REACTION WITH EOSINOPHILIA AND SYSTEMIC SYMPTOMS
     Dosage: 10 MG/KG/DOSE THREE TIMES PER DAY
     Route: 048

REACTIONS (3)
  - Condition aggravated [Recovered/Resolved]
  - Rash [Recovered/Resolved]
  - Off label use [Unknown]
